FAERS Safety Report 4609530-0 (Version None)
Quarter: 2005Q1

REPORT INFORMATION
  Report Type: 
  Country: None (occurrence: None)
  Receive Date: 20050316
  Receipt Date: 20050304
  Transmission Date: 20050727
  Serious: Yes (Hospitalization)
  Sender: FDA-Public Use
  Company Number: JP-JNJFOC-20040904705

PATIENT
  Sex: Female
  Weight: 39.6 kg

DRUGS (14)
  1. REMICADE [Suspect]
     Route: 042
  2. REMICADE [Suspect]
     Route: 042
  3. REMICADE [Suspect]
     Indication: RHEUMATOID ARTHRITIS
     Route: 042
  4. METHOTREXATE [Suspect]
     Route: 049
  5. METHOTREXATE [Suspect]
     Route: 049
  6. METHOTREXATE [Suspect]
     Route: 049
  7. METHOTREXATE [Suspect]
     Route: 049
  8. METHOTREXATE [Suspect]
     Dosage: (ALSO REPORTED AS 10 MG/WEEK FROM MAY-2004 TO AUG-2004)
     Route: 049
  9. METHOTREXATE [Suspect]
     Route: 049
  10. METHOTREXATE [Suspect]
     Route: 049
  11. PREDONINE [Suspect]
     Route: 049
  12. INH [Concomitant]
     Route: 049
  13. INH [Concomitant]
     Indication: TUBERCULOSIS PROPHYLAXIS
     Route: 049
  14. FOLIAMIN [Concomitant]
     Route: 049

REACTIONS (5)
  - DECUBITUS ULCER [None]
  - INFECTED SKIN ULCER [None]
  - INFECTION [None]
  - PURULENCE [None]
  - RASH [None]
